FAERS Safety Report 9366131 (Version 1)
Quarter: 2013Q2

REPORT INFORMATION
  Report Type: Spontaneous
  Country: GB (occurrence: None)
  Receive Date: 20130619
  Receipt Date: 20130619
  Transmission Date: 20140414
  Serious: Yes (Disabling)
  Sender: FDA-Public Use
  Company Number: TPA2013A05273

PATIENT
  Age: 80 Year
  Sex: Male

DRUGS (9)
  1. ADENURIC [Suspect]
     Indication: GOUT
     Dosage: (40 MG, 1 IN 1 D)
     Route: 048
     Dates: start: 20130426, end: 20130509
  2. BENDROFLUAZIDE (BENDROFLUMETHIAZIDE) [Concomitant]
  3. BISOPROLOL (BISOPROLOL) [Concomitant]
  4. BUMETANIDE (BUMETANIDE) [Concomitant]
  5. COLCHICINE (COLCHICINE) [Concomitant]
  6. ISOSORBIDE MONONITRATE (ISOSORBIDE MONONITRATE) [Concomitant]
  7. NICORANDIL (NICORANDIL) [Concomitant]
  8. PARACETAMOL (PARACETAMOL) [Concomitant]
  9. TIOTROPIUM (TIOTROPIUM) [Concomitant]

REACTIONS (4)
  - Confusional state [None]
  - Hallucination, visual [None]
  - Malaise [None]
  - Balance disorder [None]
